FAERS Safety Report 9240194 (Version 1)
Quarter: 2013Q2

REPORT INFORMATION
  Report Type: Spontaneous
  Country: US (occurrence: None)
  Receive Date: 20130417
  Receipt Date: 20130417
  Transmission Date: 20140414
  Serious: Yes (Hospitalization)
  Sender: FDA-Public Use
  Company Number: US=DEXPHARM-20130154

PATIENT
  Age: 58 Year
  Sex: Male
  Weight: 74.83 kg

DRUGS (1)
  1. OMEPRAZOLE [Suspect]
     Indication: GASTROOESOPHAGEAL REFLUX DISEASE
     Route: 048
     Dates: start: 20130125, end: 20130330

REACTIONS (4)
  - Chest discomfort [None]
  - Anxiety [None]
  - Hypersensitivity [None]
  - Bronchospasm [None]
